FAERS Safety Report 4598046-6 (Version None)
Quarter: 2005Q1

REPORT INFORMATION
  Report Type: 
  Country: None (occurrence: None)
  Receive Date: 20050207
  Receipt Date: 20040629
  Transmission Date: 20050727
  Serious: Yes (Hospitalization)
  Sender: FDA-Public Use
  Company Number: MEDI-0002083(0)

PATIENT
  Age: 82 Year
  Sex: Male
  Weight: 91.6266 kg

DRUGS (10)
  1. ETHYOL [Suspect]
     Indication: RADIOTHERAPY
     Dosage: 500 MG, 5 IN 1 WK, SUBCUTANEOUS
     Route: 058
     Dates: start: 20040617, end: 20040622
  2. RADIATION THERAPY [Concomitant]
  3. TAXOTERE [Concomitant]
  4. FLOMAX [Concomitant]
  5. VASOTEC [Concomitant]
  6. METAPROLOL [Concomitant]
  7. PROTONIX [Concomitant]
  8. LIPITOR [Concomitant]
  9. ASPIRIN [Concomitant]
  10. COMPAZINE [Concomitant]

REACTIONS (3)
  - BLOOD CALCIUM DECREASED [None]
  - HYPOTENSION [None]
  - SUPRAVENTRICULAR TACHYCARDIA [None]
